FAERS Safety Report 9528935 (Version 2)
Quarter: 2013Q3

REPORT INFORMATION
  Report Type: Report from Study
  Country: CA (occurrence: CA)
  Receive Date: 20130917
  Receipt Date: 20130917
  Transmission Date: 20140515
  Serious: Yes (Other)
  Sender: FDA-Public Use
  Company Number: CA-UCBSA-096171

PATIENT
  Age: 35 Year
  Sex: Male
  Weight: 126 kg

DRUGS (8)
  1. CIMZIA [Suspect]
     Indication: RHEUMATOID ARTHRITIS
     Route: 058
     Dates: start: 20130805
  2. CIMZIA [Suspect]
     Indication: RHEUMATOID ARTHRITIS
     Dosage: DOSE: 400 MG WEEKS 0-2-4
     Route: 058
     Dates: start: 20130624, end: 20130722
  3. ORENCIA [Concomitant]
     Indication: RHEUMATOID ARTHRITIS
     Route: 042
     Dates: end: 20130527
  4. MTX [Concomitant]
     Indication: RHEUMATOID ARTHRITIS
     Dosage: DOSE: QWK
     Route: 058
  5. PREDNISONE [Concomitant]
     Indication: RHEUMATOID ARTHRITIS
     Route: 048
  6. PHOSPHOMAX [Concomitant]
  7. CELEBREX [Concomitant]
  8. FOSAMAX [Concomitant]

REACTIONS (3)
  - Gallbladder disorder [Recovered/Resolved]
  - Infection [Recovering/Resolving]
  - Urinary tract infection [Recovered/Resolved]
